FAERS Safety Report 19911055 (Version 2)
Quarter: 2022Q3

REPORT INFORMATION
  Report Type: Spontaneous
  Country: BE (occurrence: BE)
  Receive Date: 20211004
  Receipt Date: 20220928
  Transmission Date: 20221026
  Serious: Yes (Death, Hospitalization, Other)
  Sender: FDA-Public Use
  Company Number: BE-AMGEN-BELSP2021150118

PATIENT

DRUGS (2)
  1. TALIMOGENE LAHERPAREPVEC [Suspect]
     Active Substance: TALIMOGENE LAHERPAREPVEC
     Indication: Malignant melanoma
     Dosage: 100000 PFU/ML
     Route: 065
  2. TALIMOGENE LAHERPAREPVEC [Suspect]
     Active Substance: TALIMOGENE LAHERPAREPVEC
     Dosage: 10000000 PFU/ML, Q2WK
     Route: 065

REACTIONS (30)
  - Metastatic malignant melanoma [Fatal]
  - Eosinophilia [Recovered/Resolved]
  - Inflammation [Unknown]
  - Acute kidney injury [Unknown]
  - Hepatic enzyme increased [Recovered/Resolved]
  - Haemorrhage [Unknown]
  - Hyperkalaemia [Unknown]
  - Hypertension [Unknown]
  - Fatigue [Unknown]
  - Nausea [Unknown]
  - Photophobia [Unknown]
  - Vertigo [Unknown]
  - Hyperhidrosis [Unknown]
  - Injection site rash [Unknown]
  - Haematoma [Unknown]
  - Vision blurred [Unknown]
  - Pruritus [Unknown]
  - Purpura [Recovered/Resolved]
  - Injection site erythema [Unknown]
  - Malaise [Unknown]
  - Therapy partial responder [Unknown]
  - Injection site pain [Unknown]
  - Influenza like illness [Unknown]
  - Diarrhoea [Unknown]
  - Rash [Unknown]
  - Headache [Unknown]
  - Myalgia [Unknown]
  - Abdominal pain [Unknown]
  - Chills [Unknown]
  - Pyrexia [Unknown]
